FAERS Safety Report 9357031 (Version 3)
Quarter: 2013Q3

REPORT INFORMATION
  Report Type: Spontaneous
  Country: AU (occurrence: AU)
  Receive Date: 20130620
  Receipt Date: 20130820
  Transmission Date: 20140515
  Serious: Yes (Hospitalization)
  Sender: FDA-Public Use
  Company Number: AU-AMGEN-AUSSP2013043009

PATIENT
  Age: 63 Year
  Sex: Male

DRUGS (4)
  1. XGEVA [Suspect]
     Indication: PROSTATE CANCER METASTATIC
     Dosage: 120 MG, UNK
     Route: 058
     Dates: start: 20130220, end: 20130522
  2. CALCIUM [Concomitant]
     Dosage: 500 MG, QD
  3. VITAMIN D                          /00107901/ [Concomitant]
     Dosage: 400 IU, AS NECESSARY
  4. CALTRATE D                         /00944201/ [Concomitant]
     Route: 048

REACTIONS (2)
  - Electrocardiogram QT prolonged [Recovered/Resolved]
  - Hypocalcaemia [Not Recovered/Not Resolved]
